FAERS Safety Report 24046698 (Version 1)
Quarter: 2024Q3

REPORT INFORMATION
  Report Type: Spontaneous
  Country: FR (occurrence: FR)
  Receive Date: 20240703
  Receipt Date: 20240703
  Transmission Date: 20241016
  Serious: Yes (Hospitalization, Other)
  Sender: VIIV
  Company Number: None

PATIENT

DRUGS (2)
  1. DOVATO [Suspect]
     Active Substance: DOLUTEGRAVIR SODIUM\LAMIVUDINE
     Indication: HIV infection
     Dosage: UNK UNK, QD (50MG/300MG PER DAY)
     Route: 048
     Dates: start: 20201210, end: 20240422
  2. METFORMIN [Concomitant]
     Active Substance: METFORMIN HYDROCHLORIDE
     Indication: Diabetes mellitus
     Dosage: 1 G, QD (1 G PER DAY)
     Route: 048
     Dates: start: 20230615

REACTIONS (2)
  - Status epilepticus [Not Recovered/Not Resolved]
  - Mitochondrial cytopathy [Not Recovered/Not Resolved]

NARRATIVE: CASE EVENT DATE: 20240408
